FAERS Safety Report 8291590-X (Version None)
Quarter: 2012Q2

REPORT INFORMATION
  Report Type: 
  Country: None (occurrence: None)
  Receive Date: 20120417
  Receipt Date: 20120406
  Transmission Date: 20120825
  Serious: Yes (Other)
  Sender: FDA-Public Use
  Company Number: JP-VERTEX PHARMACEUTICALS INC.-AE-2012-001975

PATIENT
  Sex: Male

DRUGS (11)
  1. PEG-INTRON [Concomitant]
     Route: 058
     Dates: start: 20120203
  2. REBETOL [Concomitant]
     Route: 048
     Dates: start: 20120309
  3. NAPROXEN [Concomitant]
     Route: 048
     Dates: start: 20120120, end: 20120122
  4. TELAVIC (TELAPREVIR) [Suspect]
     Indication: HEPATITIS C
     Route: 048
     Dates: start: 20120120
  5. REBETOL [Concomitant]
     Route: 048
     Dates: start: 20120203
  6. REBETOL [Concomitant]
     Route: 048
     Dates: start: 20120217
  7. CLARITIN [Concomitant]
     Route: 048
     Dates: start: 20120120, end: 20120122
  8. PEG-INTRON [Concomitant]
     Route: 058
     Dates: start: 20120127, end: 20120202
  9. PEG-INTRON [Concomitant]
     Indication: HEPATITIS C
     Route: 058
     Dates: start: 20120120, end: 20120126
  10. RABEPRAZOLE SODIUM [Concomitant]
     Route: 048
     Dates: start: 20120120
  11. REBETOL [Concomitant]
     Indication: HEPATITIS C
     Route: 048
     Dates: start: 20120120, end: 20120202

REACTIONS (3)
  - HYPERURICAEMIA [None]
  - NEUTROPENIA [None]
  - ANAEMIA [None]
